FAERS Safety Report 8579040-7 (Version None)
Quarter: 2012Q3

REPORT INFORMATION
  Report Type: 
  Country: None (occurrence: None)
  Receive Date: 20120808
  Receipt Date: 20120112
  Transmission Date: 20120928
  Serious: Yes (Death)
  Sender: FDA-Public Use
  Company Number: US-ROCHE-1034583

PATIENT
  Sex: Female

DRUGS (11)
  1. AVASTIN [Suspect]
     Indication: BREAST CANCER FEMALE
     Dates: start: 20051201
  2. HERCEPTIN [Suspect]
     Indication: PRODUCT USED FOR UNKNOWN INDICATION
  3. AVASTIN [Suspect]
  4. TAMOXIFEN CITRATE [Concomitant]
  5. CYTOXAN [Concomitant]
  6. MITOXANTRONE [Concomitant]
     Dates: start: 20051101
  7. TAXOTERE [Concomitant]
  8. TAXOL [Concomitant]
  9. LEUCOVORIN CALCIUM [Concomitant]
     Dates: start: 20051101
  10. FLUOROURACIL [Concomitant]
     Dates: start: 20051101
  11. ADRIAMYCIN PFS [Concomitant]

REACTIONS (1)
  - METASTASES TO LIVER [None]
